FAERS Safety Report 12552403 (Version 2)
Quarter: 2016Q3

REPORT INFORMATION
  Report Type: Spontaneous
  Country: US (occurrence: US)
  Receive Date: 20160713
  Receipt Date: 20160728
  Transmission Date: 20161109
  Serious: Yes (Hospitalization, Other)
  Sender: FDA-Public Use
  Company Number: US-ASTELLAS-2016US025913

PATIENT
  Age: 84 Year
  Sex: Male

DRUGS (3)
  1. LUPRON [Concomitant]
     Active Substance: LEUPROLIDE ACETATE
     Indication: HORMONE-REFRACTORY PROSTATE CANCER
     Dosage: UNK UNK, UNKNOWN FREQ.
     Route: 065
  2. XTANDI [Suspect]
     Active Substance: ENZALUTAMIDE
     Indication: HORMONE-REFRACTORY PROSTATE CANCER
     Route: 065
     Dates: start: 201603
  3. XTANDI [Suspect]
     Active Substance: ENZALUTAMIDE
     Route: 065
     Dates: start: 20160627, end: 20160705

REACTIONS (11)
  - Somnolence [Unknown]
  - Blindness [Unknown]
  - Pallor [Unknown]
  - Terminal state [Unknown]
  - Vision blurred [Unknown]
  - Mental status changes [Unknown]
  - Decreased appetite [Unknown]
  - Dizziness [Not Recovered/Not Resolved]
  - Fatigue [Not Recovered/Not Resolved]
  - Atrial fibrillation [Unknown]
  - Memory impairment [Unknown]

NARRATIVE: CASE EVENT DATE: 20160705
